FAERS Safety Report 18222353 (Version 8)
Quarter: 2021Q2

REPORT INFORMATION
  Report Type: Report from Study
  Country: JP (occurrence: JP)
  Receive Date: 20200902
  Receipt Date: 20210624
  Transmission Date: 20210717
  Serious: Yes (Hospitalization, Other)
  Sender: FDA-Public Use
  Company Number: JP-ASTELLAS-2020JP001051

PATIENT
  Age: 78 Year
  Sex: Female
  Weight: 47 kg

DRUGS (24)
  1. ASP2215 [Suspect]
     Active Substance: GILTERITINIB
     Indication: ACUTE MYELOID LEUKAEMIA
     Route: 048
     Dates: start: 20191111, end: 20191114
  2. MYSLEE [Concomitant]
     Active Substance: ZOLPIDEM TARTRATE
     Indication: INSOMNIA
     Route: 048
     Dates: start: 2014
  3. FLUCONAZOLE. [Concomitant]
     Active Substance: FLUCONAZOLE
     Route: 048
     Dates: start: 20210611
  4. MIYA?BM [Concomitant]
     Active Substance: CLOSTRIDIUM BUTYRICUM SPORES STRAIN M-55
     Indication: FAECES SOFT
     Route: 048
     Dates: start: 20200119
  5. AS3156378 [Suspect]
     Active Substance: AZACITIDINE
     Route: 042
     Dates: start: 20200918
  6. NEXIUM [Concomitant]
     Active Substance: ESOMEPRAZOLE MAGNESIUM
     Indication: PROPHYLAXIS
     Route: 048
     Dates: start: 2015
  7. TRAZENTA [Concomitant]
     Active Substance: LINAGLIPTIN
     Indication: DIABETES MELLITUS
     Route: 048
     Dates: start: 2016
  8. LOXONIN [Concomitant]
     Active Substance: LOXOPROFEN SODIUM
     Indication: PAIN
     Dosage: ADEQUATE DOSE, AS NEEDED
     Route: 050
     Dates: start: 201910
  9. AMLODIPINE [Concomitant]
     Active Substance: AMLODIPINE BESYLATE
     Indication: PRODUCT USED FOR UNKNOWN INDICATION
     Route: 048
     Dates: start: 20200904
  10. GATIFLO [Concomitant]
     Active Substance: GATIFLOXACIN
     Indication: CATARACT
     Dosage: ADEQUATE DOSE, AS NEEDED
     Route: 047
     Dates: start: 201909
  11. AS3156378 [Suspect]
     Active Substance: AZACITIDINE
     Indication: ACUTE MYELOID LEUKAEMIA
     Route: 042
     Dates: start: 20191111, end: 20191114
  12. BROMFENAC SODIUM HYDRATE [Concomitant]
     Indication: CATARACT
     Dosage: ADEQUATE DOSE, AS NEEDED
     Route: 047
     Dates: start: 201909
  13. ASP2215 [Suspect]
     Active Substance: GILTERITINIB
     Route: 048
     Dates: start: 20210618
  14. FML [Concomitant]
     Active Substance: FLUOROMETHOLONE
     Indication: CATARACT
     Dosage: ADEQUATE DOSE, AS NEEDED
     Route: 047
     Dates: start: 20191030
  15. CALONAL [Concomitant]
     Active Substance: ACETAMINOPHEN
     Indication: PAIN
     Route: 048
     Dates: start: 20191030
  16. WHITE PETROLATUM [Concomitant]
     Active Substance: PETROLATUM
     Indication: PROPHYLAXIS
     Dosage: ADEQUATE DOSE, AS NEEDED
     Route: 050
     Dates: start: 20191124
  17. ASP2215 [Suspect]
     Active Substance: GILTERITINIB
     Route: 048
     Dates: start: 20191129, end: 20200828
  18. ASP2215 [Suspect]
     Active Substance: GILTERITINIB
     Route: 048
     Dates: start: 20200910, end: 20210611
  19. AS3156378 [Suspect]
     Active Substance: AZACITIDINE
     Route: 042
     Dates: start: 20200117, end: 20200803
  20. LOXOPROFEN SODIUM HYDRATE [Concomitant]
     Active Substance: LOXOPROFEN SODIUM DIHYDRATE
     Indication: PAIN
     Dosage: 60 MG,AS NEEDED
     Route: 048
     Dates: start: 201910
  21. REBAMIPIDE [Concomitant]
     Active Substance: REBAMIPIDE
     Indication: PROPHYLAXIS
     Route: 048
     Dates: start: 201910
  22. HEPARINOID [Concomitant]
     Active Substance: CHONDROITIN SULFATE (BOVINE)
     Indication: PROPHYLAXIS
     Dosage: ADEQUATE DOSE, AS NEEDED
     Route: 050
     Dates: start: 20191108
  23. AZUNOL GARGLE LIQUID [Concomitant]
     Active Substance: SODIUM GUALENATE MONOHYDRATE
     Indication: PROPHYLAXIS
     Dosage: ADEQUATE DOSE, AS NEEDED
     Route: 050
     Dates: start: 20191118
  24. FLUCONAZOLE. [Concomitant]
     Active Substance: FLUCONAZOLE
     Indication: PROPHYLAXIS
     Route: 048
     Dates: start: 20191126

REACTIONS (4)
  - Febrile neutropenia [Recovered/Resolved]
  - Infection [Recovered/Resolved]
  - Septic embolus [Recovered/Resolved]
  - Cellulitis [Recovered/Resolved]

NARRATIVE: CASE EVENT DATE: 20200218
